FAERS Safety Report 23632938 (Version 2)
Quarter: 2024Q1

REPORT INFORMATION
  Report Type: Report from Study
  Country: US (occurrence: US)
  Receive Date: 20240314
  Receipt Date: 20240315
  Transmission Date: 20240409
  Serious: Yes (Hospitalization)
  Sender: FDA-Public Use
  Company Number: US-PFIZER INC-PV202400034397

PATIENT
  Age: 38 Year
  Sex: Female
  Weight: 48.98 kg

DRUGS (20)
  1. CYTARABINE [Suspect]
     Active Substance: CYTARABINE
     Indication: Acute myeloid leukaemia
     Dosage: UNK
  2. GEMTUZUMAB OZOGAMICIN [Suspect]
     Active Substance: GEMTUZUMAB OZOGAMICIN
     Indication: Acute myeloid leukaemia
     Dosage: D1, 4
  3. MIDOSTAURIN [Suspect]
     Active Substance: MIDOSTAURIN
     Indication: Acute myeloid leukaemia
     Dosage: TAKE 2 CAPSULES BY MOUTH EVERY 12 HOURS. ON DAYS 8-21 OF 28 DAY CYCLE.
     Route: 048
     Dates: start: 20240129
  4. CYTARABINE [Concomitant]
     Active Substance: CYTARABINE
     Dosage: UNK
  5. CYTARABINE [Concomitant]
     Active Substance: CYTARABINE
     Dosage: 3000 MG/M2, ONCE
     Route: 042
  6. DICYCLOMINE [Concomitant]
     Active Substance: DICYCLOMINE HYDROCHLORIDE
     Indication: Abdominal rigidity
     Dosage: TAKE 1 TABLET BY MOUTH 3 TIMES DAILY AS NEEDED
     Route: 048
  7. KLOR-CON M20 [Concomitant]
     Active Substance: POTASSIUM CHLORIDE
     Dosage: TAKE 2 TABLETS BY MOUTH EVERY DAY
     Route: 048
  8. NICOTINE [Concomitant]
     Active Substance: NICOTINE
     Dosage: 21 MG/24HR PATCH 24 HR PATCH, PLACE 1 PATCH ON SKIN EVERY 24 HOURS
  9. ONDANSETRON [Concomitant]
     Active Substance: ONDANSETRON
     Dosage: TAKE 8 MG (1 TAB) 30 MIN PRIOR TO EACH EVENING DOSE OF CYTARABINE CHEMOTHERAPY
     Route: 048
  10. POSACONAZOLE [Concomitant]
     Active Substance: POSACONAZOLE
     Dosage: TAKE 3 TABLETS BY MOUTH EVERY 24 HOURS
     Route: 048
     Dates: start: 20220102
  11. PROCHLORPERAZINE [Concomitant]
     Active Substance: PROCHLORPERAZINE
     Indication: Nausea
     Dosage: TAKE 1 TABLET BY MOUTH EVERY 6 HOURS AS NEEDED
     Route: 048
  12. PROCHLORPERAZINE [Concomitant]
     Active Substance: PROCHLORPERAZINE
     Indication: Vomiting
  13. ACYCLOVIR [Concomitant]
     Active Substance: ACYCLOVIR
     Dosage: TAKE 1 TABLET 2 TIMES DAILY
     Route: 048
  14. DEXAMETHASONE [Concomitant]
     Active Substance: DEXAMETHASONE
     Dosage: SHAKE WELL. INSTILL 2 DROPS IN BOTH EYES FOUR TIMES DAILY WHILE AWAKE
  15. NIVESTYM [FILGRASTIM AAFI] [Concomitant]
     Dosage: 300 MCG/0.5ML, INJECT 1 SYRINGE UNDER THE SKIN EVERY EVENING AT 6 PM
  16. HYDROXYZINE HYDROCHLORIDE [Concomitant]
     Active Substance: HYDROXYZINE HYDROCHLORIDE
     Indication: Anxiety
     Dosage: TAKE 1 TABLET BY MOUTH 3 TIMES DAILY
     Route: 048
  17. LEVOFLOXACIN [Concomitant]
     Active Substance: LEVOFLOXACIN
     Dosage: TAKE 1 TABLET BY MOUTH DAILY.
     Route: 048
     Dates: start: 20220102
  18. URSODIOL [Concomitant]
     Active Substance: URSODIOL
     Dosage: TAKE 1 CAPSULE BY MOUTH 3 TIMES DAILY.
     Route: 048
  19. VARENICLINE [Concomitant]
     Active Substance: VARENICLINE
     Dosage: TAKE 0.5 TABLETS DAILY FOR 3 DAYS, THEN 0.5 TABLETS 2 TIMES DAILY FOR 3 DAYS, THEN 1 TABLET DAILY
     Route: 048
  20. PEGFILGRASTIM [Concomitant]
     Active Substance: PEGFILGRASTIM
     Dosage: UNK
     Dates: start: 20220102

REACTIONS (1)
  - Haematochezia [Not Recovered/Not Resolved]

NARRATIVE: CASE EVENT DATE: 20240310
